FAERS Safety Report 13689320 (Version 1)
Quarter: 2017Q2

REPORT INFORMATION
  Report Type: Spontaneous
  Country: PE (occurrence: PE)
  Receive Date: 20170626
  Receipt Date: 20170626
  Transmission Date: 20170830
  Serious: Yes (Other)
  Sender: FDA-Public Use
  Company Number: PE-GLAXOSMITHKLINE-PE2017GSK098171

PATIENT
  Age: 84 Year
  Sex: Male

DRUGS (1)
  1. DUODART [Suspect]
     Active Substance: DUTASTERIDE\TAMSULOSIN
     Indication: BENIGN PROSTATIC HYPERPLASIA
     Dosage: 1 DF, QD, CAPSULE
     Route: 048
     Dates: start: 201701, end: 201704

REACTIONS (5)
  - Disease recurrence [Unknown]
  - Insomnia [Unknown]
  - Irritability [Unknown]
  - Infarction [Unknown]
  - Crying [Unknown]

NARRATIVE: CASE EVENT DATE: 201704
